FAERS Safety Report 18557910 (Version 1)
Quarter: 2020Q4

REPORT INFORMATION
  Report Type: Spontaneous
  Country: GB (occurrence: GB)
  Receive Date: 20201130
  Receipt Date: 20201130
  Transmission Date: 20210114
  Serious: Yes (Other)
  Sender: FDA-Public Use
  Company Number: GB-AUROBINDO-AUR-APL-2020-058468

PATIENT
  Age: 36 Year
  Sex: Female

DRUGS (3)
  1. BENEPALI [Suspect]
     Active Substance: ETANERCEPT
     Indication: PSORIATIC ARTHROPATHY
     Dosage: 50 MILLIGRAM, EVERY WEEK
     Route: 058
  2. IBUPROFEN. [Concomitant]
     Active Substance: IBUPROFEN
     Indication: PRODUCT USED FOR UNKNOWN INDICATION
     Dosage: UNK
     Route: 065
  3. TRAMADOL. [Suspect]
     Active Substance: TRAMADOL
     Indication: PRODUCT USED FOR UNKNOWN INDICATION
     Dosage: UNK
     Route: 065

REACTIONS (12)
  - Psoriatic arthropathy [Unknown]
  - Asthenia [Unknown]
  - Fatigue [Unknown]
  - Gait disturbance [Unknown]
  - Insomnia [Unknown]
  - Joint injury [Unknown]
  - Kidney infection [Unknown]
  - Hypermobility syndrome [Unknown]
  - Dyspnoea [Unknown]
  - Suspected COVID-19 [Unknown]
  - Tooth infection [Unknown]
  - Stress [Unknown]
